FAERS Safety Report 26183938 (Version 1)
Quarter: 2025Q4

REPORT INFORMATION
  Report Type: Spontaneous
  Country: EU (occurrence: EU)
  Receive Date: 20251222
  Receipt Date: 20251222
  Transmission Date: 20260118
  Serious: Yes (Hospitalization, Other)
  Sender: MICRO LABS LIMITED
  Company Number: EU-MICRO LABS LIMITED-ML2025-06643

PATIENT
  Age: 46 Year
  Sex: Female

DRUGS (1)
  1. DEXAMETHASONE [Suspect]
     Active Substance: DEXAMETHASONE
     Indication: Back pain

REACTIONS (4)
  - Abscess limb [Recovered/Resolved]
  - Cushing^s syndrome [Recovered/Resolved]
  - Injection site abscess [Recovered/Resolved]
  - Adrenal insufficiency [Recovered/Resolved]
